FAERS Safety Report 10891989 (Version 1)
Quarter: 2015Q1

REPORT INFORMATION
  Report Type: Spontaneous
  Country: RU (occurrence: RU)
  Receive Date: 20150306
  Receipt Date: 20150306
  Transmission Date: 20150721
  Serious: Yes (Life-Threatening)
  Sender: FDA-Public Use
  Company Number: RU-ASTRAZENECA-2015SE19384

PATIENT
  Age: 75 Year
  Sex: Female

DRUGS (1)
  1. BRILINTA [Suspect]
     Active Substance: TICAGRELOR
     Indication: MYOCARDIAL INFARCTION
     Route: 048
     Dates: start: 20150206

REACTIONS (2)
  - Myocardial infarction [Recovering/Resolving]
  - Thrombosis in device [Recovering/Resolving]

NARRATIVE: CASE EVENT DATE: 20150212
